FAERS Safety Report 6647873-X (Version None)
Quarter: 2010Q1

REPORT INFORMATION
  Report Type: 
  Country: None (occurrence: None)
  Receive Date: 20100324
  Receipt Date: 20100315
  Transmission Date: 20100710
  Serious: Yes (Hospitalization)
  Sender: FDA-Public Use
  Company Number: FR-ASTRAZENECA-2010SE11426

PATIENT
  Age: 28375 Day
  Sex: Male

DRUGS (5)
  1. NEXIUM [Suspect]
     Route: 048
     Dates: start: 20100209, end: 20100215
  2. PRADAXA [Suspect]
     Route: 048
     Dates: start: 20100209, end: 20100225
  3. INIPOMP [Suspect]
     Route: 048
     Dates: start: 20100216, end: 20100223
  4. KARDEGIC [Concomitant]
     Route: 048
     Dates: start: 20100209
  5. MICARDIS [Concomitant]
     Route: 048
     Dates: start: 20100209

REACTIONS (2)
  - GENERALISED ERYTHEMA [None]
  - PRURITUS [None]
